FAERS Safety Report 8858151 (Version 1)
Quarter: 2012Q4

REPORT INFORMATION
  Report Type: 
  Country: US (occurrence: US)
  Receive Date: 20121024
  Receipt Date: 20121024
  Transmission Date: 20130627
  Serious: No
  Sender: FDA-Public Use
  Company Number: US-AMGEN-USASP2011065842

PATIENT
  Age: 67 Year
  Sex: Female

DRUGS (9)
  1. ENBREL [Suspect]
     Indication: PRODUCT USED FOR UNKNOWN INDICATION
     Dosage: 50 mg, qwk
     Route: 058
  2. FISH OIL [Concomitant]
  3. FOLIC ACID [Concomitant]
     Dosage: 1 mg, UNK
  4. MULTIVITAMIN [Concomitant]
  5. LECITHIN [Concomitant]
  6. SELENIUM [Concomitant]
  7. CALCIUM + VITAMIN D [Concomitant]
  8. COQ-10 [Concomitant]
     Dosage: 10 mg, UNK
  9. ADVIL [Concomitant]
     Dosage: 200 mg, UNK

REACTIONS (1)
  - Malaise [Unknown]
